FAERS Safety Report 4627754-3 (Version None)
Quarter: 2005Q2

REPORT INFORMATION
  Report Type: 
  Country: None (occurrence: None)
  Receive Date: 20050406
  Receipt Date: 20050302
  Transmission Date: 20051028
  Serious: Yes (Hospitalization)
  Sender: FDA-Public Use
  Company Number: US-BOEHRINGER INGELHEIM PHARMMACEUTICALS, INC.-2005-BP-03287BP

PATIENT
  Sex: Female

DRUGS (7)
  1. CLONIDINE HCL [Suspect]
     Indication: HYPERTENSION
     Dates: start: 20031216, end: 20041101
  2. CLONIDINE HCL [Suspect]
     Dosage: 0.3 MG BID
     Dates: start: 20041101
  3. AVAPRO [Concomitant]
  4. CLONIDINE [Concomitant]
     Dosage: TWICE A DAY
  5. LASIX [Concomitant]
     Dosage: 40 MG TWICE WEEKLY
  6. KLOR-CON [Concomitant]
     Dosage: TWICE WEEKLY
  7. TOPROL-XL [Concomitant]

REACTIONS (3)
  - ALOPECIA [None]
  - HAIR TEXTURE ABNORMAL [None]
  - KNEE ARTHROPLASTY [None]
